FAERS Safety Report 19256784 (Version 2)
Quarter: 2022Q3

REPORT INFORMATION
  Report Type: Report from Study
  Country: CA (occurrence: CA)
  Receive Date: 20210513
  Receipt Date: 20220803
  Transmission Date: 20221027
  Serious: Yes (Hospitalization, Other)
  Sender: FDA-Public Use
  Company Number: CA-BAYER-2021-135664

PATIENT
  Age: 57 Year
  Sex: Female

DRUGS (10)
  1. MOXIFLOXACIN [Suspect]
     Active Substance: MOXIFLOXACIN
     Indication: Product used for unknown indication
     Route: 065
  2. CIPROFLOXACIN [Suspect]
     Active Substance: CIPROFLOXACIN
     Indication: Product used for unknown indication
  3. HYDROCHLOROTHIAZIDE [Suspect]
     Active Substance: HYDROCHLOROTHIAZIDE
     Route: 065
  4. LISINOPRIL [Suspect]
     Active Substance: LISINOPRIL
     Indication: Product used for unknown indication
     Route: 048
  5. MAVIK [Suspect]
     Active Substance: TRANDOLAPRIL
  6. OMALIZUMAB [Suspect]
     Active Substance: OMALIZUMAB
     Dosage: 150 MG
     Route: 058
  7. OMALIZUMAB [Suspect]
     Active Substance: OMALIZUMAB
     Dosage: 150 MG
     Route: 058
  8. OMALIZUMAB [Suspect]
     Active Substance: OMALIZUMAB
     Dosage: 150 MG
     Route: 058
  9. OMALIZUMAB [Suspect]
     Active Substance: OMALIZUMAB
     Dosage: 150 MG
     Route: 058
  10. CIPROFLOXACIN HYDROCHLORIDE [Suspect]
     Active Substance: CIPROFLOXACIN HYDROCHLORIDE

REACTIONS (20)
  - Angioedema [Recovered/Resolved]
  - Drug hypersensitivity [Recovered/Resolved]
  - Drug intolerance [Recovered/Resolved]
  - Dyspnoea [Recovered/Resolved]
  - Erythema [Recovered/Resolved]
  - Face oedema [Recovered/Resolved]
  - Facial asymmetry [Recovered/Resolved]
  - Oxygen saturation decreased [Recovered/Resolved]
  - Headache [Recovered/Resolved]
  - Pharyngeal oedema [Recovered/Resolved]
  - Pneumonia [Recovered/Resolved]
  - Pruritus [Recovered/Resolved]
  - Rash [Recovered/Resolved]
  - Skin plaque [Recovered/Resolved]
  - Swelling [Recovered/Resolved]
  - Swelling face [Recovered/Resolved]
  - Swollen tongue [Recovered/Resolved]
  - Syncope [Recovered/Resolved]
  - Urticaria [Recovered/Resolved]
  - Uterine leiomyoma [Recovered/Resolved]
